FAERS Safety Report 8144047-0 (Version None)
Quarter: 2012Q1

REPORT INFORMATION
  Report Type: 
  Country: None (occurrence: None)
  Receive Date: 20120217
  Receipt Date: 20120217
  Transmission Date: 20120608
  Serious: No
  Sender: FDA-Public Use
  Company Number: None

PATIENT
  Age: 61 Year
  Sex: Female
  Weight: 62.142 kg

DRUGS (2)
  1. CYMBALTA [Suspect]
     Indication: MYALGIA
     Dosage: 30 MG
     Route: 048
     Dates: start: 20090108, end: 20100521
  2. CYMBALTA [Suspect]
     Indication: ARTHRALGIA
     Dosage: 30 MG
     Route: 048
     Dates: start: 20090108, end: 20100521

REACTIONS (6)
  - WEIGHT INCREASED [None]
  - MUSCLE SWELLING [None]
  - HIP ARTHROPLASTY [None]
  - PAIN [None]
  - FATIGUE [None]
  - LYME DISEASE [None]
